FAERS Safety Report 8485305-X (Version None)
Quarter: 2012Q3

REPORT INFORMATION
  Report Type: 
  Country: None (occurrence: None)
  Receive Date: 20120703
  Receipt Date: 20120628
  Transmission Date: 20120928
  Serious: Yes (Hospitalization)
  Sender: FDA-Public Use
  Company Number: US-ROCHE-1064668

PATIENT
  Sex: Female
  Weight: 99.426 kg

DRUGS (1)
  1. XELODA [Suspect]
     Indication: COLORECTAL CANCER METASTATIC
     Route: 048
     Dates: start: 20111229

REACTIONS (5)
  - MALNUTRITION [None]
  - DECREASED APPETITE [None]
  - WEIGHT DECREASED [None]
  - NAIL DISCOLOURATION [None]
  - ONYCHOCLASIS [None]
